FAERS Safety Report 15458597 (Version 1)
Quarter: 2018Q4

REPORT INFORMATION
  Report Type: Spontaneous
  Country: US (occurrence: US)
  Receive Date: 20181003
  Receipt Date: 20181003
  Transmission Date: 20190204
  Serious: No
  Sender: FDA-Public Use
  Company Number: US-AUROBINDO-AUR-APU-2017-42212

PATIENT
  Sex: Female

DRUGS (1)
  1. AMPICILLIN FOR INJECTION USP 500MG [Suspect]
     Active Substance: AMPICILLIN
     Indication: PRODUCT USED FOR UNKNOWN INDICATION
     Route: 065

REACTIONS (1)
  - Product preparation issue [Unknown]
